FAERS Safety Report 18777835 (Version 1)
Quarter: 2021Q1

REPORT INFORMATION
  Report Type: Spontaneous
  Country: US (occurrence: US)
  Receive Date: 20210122
  Receipt Date: 20210122
  Transmission Date: 20210419
  Serious: No
  Sender: FDA-Public Use
  Company Number: 2020SGN03450

PATIENT
  Sex: Female

DRUGS (4)
  1. TUKYSA [Suspect]
     Active Substance: TUCATINIB
     Dosage: 300 MG, BID
     Route: 048
  2. TUKYSA [Suspect]
     Active Substance: TUCATINIB
     Indication: BREAST CANCER FEMALE
     Dosage: UNK, BID
  3. HERCEPTIN [Concomitant]
     Active Substance: TRASTUZUMAB
     Indication: BREAST CANCER FEMALE
     Dosage: UNK, Q21D
  4. TUKYSA [Suspect]
     Active Substance: TUCATINIB
     Dosage: 2 DF, BID

REACTIONS (11)
  - Alopecia [Unknown]
  - Gastrooesophageal reflux disease [Unknown]
  - Increased appetite [Unknown]
  - Nausea [Unknown]
  - Madarosis [Unknown]
  - Dehydration [Unknown]
  - Diarrhoea [Unknown]
  - Fatigue [Unknown]
  - Unevaluable event [Unknown]
  - Dizziness [Unknown]
  - Renal disorder [Unknown]
